FAERS Safety Report 23506289 (Version 1)
Quarter: 2024Q1

REPORT INFORMATION
  Report Type: Spontaneous
  Country: US (occurrence: US)
  Receive Date: 20240209
  Receipt Date: 20240209
  Transmission Date: 20240410
  Serious: Yes (Other)
  Sender: FDA-Public Use
  Company Number: US-SA-SAC20240205001454

PATIENT
  Age: 24 Year
  Sex: Male
  Weight: 77.098 kg

DRUGS (1)
  1. CERDELGA [Suspect]
     Active Substance: ELIGLUSTAT
     Indication: Gaucher^s disease
     Dosage: 84 MG, BID
     Route: 048
     Dates: start: 202003

REACTIONS (3)
  - Electrocardiogram ST segment elevation [Unknown]
  - Muscle spasms [Unknown]
  - Weight increased [Unknown]

NARRATIVE: CASE EVENT DATE: 20231110
